FAERS Safety Report 24819316 (Version 1)
Quarter: 2025Q1

REPORT INFORMATION
  Report Type: Spontaneous
  Country: US (occurrence: US)
  Receive Date: 20250108
  Receipt Date: 20250108
  Transmission Date: 20250409
  Serious: Yes (Other)
  Sender: ELI LILLY AND COMPANY
  Company Number: US-ELI_LILLY_AND_COMPANY-US202501001557

PATIENT
  Age: 50 Year
  Sex: Female

DRUGS (4)
  1. EMGALITY [Suspect]
     Active Substance: GALCANEZUMAB-GNLM
     Indication: Product used for unknown indication
     Route: 065
  2. EMGALITY [Suspect]
     Active Substance: GALCANEZUMAB-GNLM
     Indication: Product used for unknown indication
     Route: 065
  3. EMGALITY [Suspect]
     Active Substance: GALCANEZUMAB-GNLM
     Route: 065
  4. EMGALITY [Suspect]
     Active Substance: GALCANEZUMAB-GNLM
     Route: 065

REACTIONS (7)
  - Intracranial aneurysm [Unknown]
  - Thrombosis [Unknown]
  - Carotid artery dissection [Unknown]
  - Product dose omission issue [Unknown]
  - Headache [Unknown]
  - Therapeutic response shortened [Unknown]
  - Nausea [Unknown]
